FAERS Safety Report 4762161-4 (Version None)
Quarter: 2005Q3

REPORT INFORMATION
  Report Type: 
  Country: None (occurrence: None)
  Receive Date: 20050906
  Receipt Date: 20050906
  Transmission Date: 20060218
  Serious: Yes (Death)
  Sender: FDA-Public Use
  Company Number: None

PATIENT
  Age: 48 Year
  Sex: Male
  Weight: 104.3273 kg

DRUGS (2)
  1. XANAX [Suspect]
     Indication: DEPRESSION
     Dosage: 1MG   2X A DAY  PO  (EVERY 2 TO 3 MONTHS)
     Route: 048
  2. WELLBUTRIN SR [Suspect]
     Dosage: 1 TAB   2X ADAY  PO
     Route: 048

REACTIONS (1)
  - COMPLETED SUICIDE [None]
